FAERS Safety Report 8818614 (Version 1)
Quarter: 2012Q4

REPORT INFORMATION
  Report Type: 
  Country: AU (occurrence: AU)
  Receive Date: 20121001
  Receipt Date: 20121001
  Transmission Date: 20130627
  Serious: Yes (Other)
  Sender: FDA-Public Use
  Company Number: AU-PFIZER INC-2012239195

PATIENT
  Age: 73 Year
  Sex: Male

DRUGS (1)
  1. CELEBREX [Suspect]
     Dosage: 200 mg, 1x/day
     Dates: start: 20120821

REACTIONS (1)
  - Diplopia [Not Recovered/Not Resolved]
